FAERS Safety Report 5643700-8 (Version None)
Quarter: 2008Q1

REPORT INFORMATION
  Report Type: 
  Country: None (occurrence: None)
  Receive Date: 20080226
  Receipt Date: 20080215
  Transmission Date: 20080703
  Serious: Yes (Death, Hospitalization, Other)
  Sender: FDA-Public Use
  Company Number: 45351

PATIENT
  Age: 5 Month
  Sex: Female
  Weight: 5 kg

DRUGS (1)
  1. PROPOFOL [Suspect]
     Indication: SEDATION
     Dosage: 15MG IV
     Route: 042

REACTIONS (5)
  - HYPOCALCAEMIA [None]
  - HYPOXIC ENCEPHALOPATHY [None]
  - OXYGEN SATURATION DECREASED [None]
  - TORSADE DE POINTES [None]
  - VENTRICULAR FIBRILLATION [None]
